FAERS Safety Report 7774993-9 (Version None)
Quarter: 2011Q3

REPORT INFORMATION
  Report Type: 
  Country: None (occurrence: None)
  Receive Date: 20110923
  Receipt Date: 20110923
  Transmission Date: 20111222
  Serious: Yes (Life-Threatening)
  Sender: FDA-Public Use
  Company Number: GB-EISAI INC-E2020-09760-SPO-GB

PATIENT
  Age: 72 Year
  Sex: Female
  Weight: 60.33 kg

DRUGS (3)
  1. ARICEPT [Suspect]
     Dosage: UNKNOWN
     Route: 048
     Dates: start: 20110601
  2. SUDOCREM [Concomitant]
     Dates: start: 20110629, end: 20110630
  3. TIMODINE [Concomitant]
     Dates: start: 20110819, end: 20110826

REACTIONS (1)
  - ANAPHYLACTIC REACTION [None]
